FAERS Safety Report 5163472-3 (Version None)
Quarter: 2006Q4

REPORT INFORMATION
  Report Type: 
  Country: None (occurrence: None)
  Receive Date: 20061129
  Receipt Date: 20061129
  Transmission Date: 20070319
  Serious: Yes (Other)
  Sender: FDA-Public Use
  Company Number: None

PATIENT
  Sex: Female
  Weight: 53.0709 kg

DRUGS (2)
  1. EQUATE EXTRA STRENGTH PAIN RELIEVER  ACETAMINOPHEN  100 CAPLETS  500 M [Suspect]
     Indication: BREAST COSMETIC SURGERY
     Dosage: 1 TABLET EVERY 6 HRS   ABOUT 4-5X'S A DAY  047  ORAL
     Route: 048
     Dates: start: 20060919, end: 20061021
  2. EQUATE EXTRA STRENGTH PAIN RELIEVER  ACETAMINOPHEN  100 CAPLETS  500 M [Suspect]
     Indication: PROCEDURAL PAIN
     Dosage: 1 TABLET EVERY 6 HRS   ABOUT 4-5X'S A DAY  047  ORAL
     Route: 048
     Dates: start: 20060919, end: 20061021

REACTIONS (4)
  - ABDOMINAL PAIN UPPER [None]
  - DYSPEPSIA [None]
  - PYREXIA [None]
  - STOMACH DISCOMFORT [None]
